FAERS Safety Report 13523000 (Version 11)
Quarter: 2019Q2

REPORT INFORMATION
  Report Type: Spontaneous
  Country: US (occurrence: US)
  Receive Date: 20170508
  Receipt Date: 20190503
  Transmission Date: 20190711
  Serious: No
  Sender: FDA-Public Use
  Company Number: US-VIFOR (INTERNATIONAL) INC.-VIT-2017-00710

PATIENT
  Age: 87 Year
  Sex: Female
  Weight: 108.96 kg

DRUGS (12)
  1. STOOL SOFTENER (DOCUSATE) [Concomitant]
     Active Substance: DOCUSATE
  2. CRESTOR [Concomitant]
     Active Substance: ROSUVASTATIN CALCIUM
  3. VELTASSA [Suspect]
     Active Substance: PATIROMER
     Route: 048
  4. ZEMPLAR [Concomitant]
     Active Substance: PARICALCITOL
  5. FUROSEMIDE. [Concomitant]
     Active Substance: FUROSEMIDE
  6. OMEPRAZOLE. [Concomitant]
     Active Substance: OMEPRAZOLE
  7. VITAMIN D3 [Concomitant]
     Active Substance: CHOLECALCIFEROL
  8. VELTASSA [Suspect]
     Active Substance: PATIROMER
     Route: 048
  9. TRAMADOL HCL [Concomitant]
     Active Substance: TRAMADOL HYDROCHLORIDE
  10. MAGNESIUM CITRATE. [Concomitant]
     Active Substance: MAGNESIUM CITRATE
  11. VELTASSA [Suspect]
     Active Substance: PATIROMER
     Indication: CHRONIC KIDNEY DISEASE
     Route: 048
     Dates: start: 20161129
  12. MAGNESIUM [Concomitant]
     Active Substance: MAGNESIUM

REACTIONS (13)
  - Abdominal discomfort [Not Recovered/Not Resolved]
  - Off label use [Unknown]
  - Influenza [Unknown]
  - Dyspnoea [Recovered/Resolved]
  - Constipation [Not Recovered/Not Resolved]
  - Asthenia [Not Recovered/Not Resolved]
  - Abdominal distension [Not Recovered/Not Resolved]
  - Fatigue [Recovered/Resolved]
  - Malaise [Not Recovered/Not Resolved]
  - Product dose omission [Unknown]
  - Nasopharyngitis [Not Recovered/Not Resolved]
  - Product use in unapproved indication [Unknown]
  - Blood iron abnormal [Unknown]

NARRATIVE: CASE EVENT DATE: 20161129
